FAERS Safety Report 9932772 (Version 1)
Quarter: 2014Q1

REPORT INFORMATION
  Report Type: Spontaneous
  Country: US (occurrence: US)
  Receive Date: 20140228
  Receipt Date: 20140228
  Transmission Date: 20141002
  Serious: No
  Sender: FDA-Public Use
  Company Number: US-GLAXOSMITHKLINE-A1038319A

PATIENT
  Age: 47 Year
  Sex: Male

DRUGS (6)
  1. IMITREX [Suspect]
     Indication: MIGRAINE
     Dosage: 6MG AS REQUIRED
     Route: 058
     Dates: start: 1994
  2. SUMATRIPTAN SUCCINATE [Suspect]
     Indication: MIGRAINE
     Route: 042
  3. IMITREX [Suspect]
     Indication: MIGRAINE
     Route: 048
  4. CYMBALTA [Concomitant]
  5. DEXEDRINE [Concomitant]
  6. ANDROGEL [Concomitant]

REACTIONS (10)
  - Injection site pain [Unknown]
  - Tension headache [Unknown]
  - Muscle tightness [Unknown]
  - Throat tightness [Unknown]
  - Chest discomfort [Unknown]
  - Therapeutic response decreased [Unknown]
  - Drug ineffective [Unknown]
  - Product quality issue [Unknown]
  - Drug administration error [Unknown]
  - Activities of daily living impaired [Unknown]
